FAERS Safety Report 10537172 (Version 2)
Quarter: 2014Q4

REPORT INFORMATION
  Report Type: Spontaneous
  Country: US (occurrence: US)
  Receive Date: 20141022
  Receipt Date: 20141030
  Transmission Date: 20150529
  Serious: Yes (Hospitalization, Other)
  Sender: FDA-Public Use
  Company Number: US-GILEAD-2014-0119404

PATIENT
  Age: 44 Year
  Sex: Female

DRUGS (4)
  1. TYVASO [Concomitant]
     Active Substance: TREPROSTINIL
  2. WARFARIN [Concomitant]
     Active Substance: WARFARIN
  3. LETAIRIS [Suspect]
     Active Substance: AMBRISENTAN
     Indication: PRODUCT USED FOR UNKNOWN INDICATION
     Dosage: 10 MG, QD
     Route: 065
     Dates: start: 20130926
  4. ADEMPAS [Concomitant]
     Active Substance: RIOCIGUAT

REACTIONS (9)
  - Uterine dilation and curettage [Unknown]
  - Hysterectomy [Unknown]
  - Transfusion [Unknown]
  - Exercise tolerance decreased [Unknown]
  - Menorrhagia [Unknown]
  - Gait disturbance [Unknown]
  - Dyspnoea [Unknown]
  - Amenorrhoea [Unknown]
  - Haemorrhage [Recovering/Resolving]
